FAERS Safety Report 11849830 (Version 1)
Quarter: 2015Q4

REPORT INFORMATION
  Report Type: Spontaneous
  Country: DK (occurrence: GB)
  Receive Date: 20151218
  Receipt Date: 20151218
  Transmission Date: 20160305
  Serious: Yes (Disabling)
  Sender: FDA-Public Use
  Company Number: GB-FRI-1000081465

PATIENT
  Age: 45 Year
  Sex: Female
  Weight: 80 kg

DRUGS (1)
  1. CITALOPRAM [Suspect]
     Active Substance: CITALOPRAM HYDROBROMIDE
     Indication: DEPRESSION
     Dosage: 20 MG
     Route: 048
     Dates: start: 2010, end: 2015

REACTIONS (5)
  - Bladder irritation [Recovered/Resolved]
  - Urinary tract infection [Recovered/Resolved]
  - Pollakiuria [Recovered/Resolved]
  - Kidney infection [Recovered/Resolved]
  - Cystitis [Recovered/Resolved]

NARRATIVE: CASE EVENT DATE: 20100710
